FAERS Safety Report 25474023 (Version 1)
Quarter: 2025Q2

REPORT INFORMATION
  Report Type: Spontaneous
  Country: US (occurrence: US)
  Receive Date: 20250624
  Receipt Date: 20250624
  Transmission Date: 20250716
  Serious: No
  Sender: MYLAN
  Company Number: US-MYLANLABS-2025M1052194

PATIENT
  Age: 56 Year
  Sex: Male
  Weight: 178 kg

DRUGS (4)
  1. GABAPENTIN [Suspect]
     Active Substance: GABAPENTIN
     Indication: Neuropathy peripheral
     Dosage: 800 MILLIGRAM, TID (THREE TIMES A DAY)
  2. GABAPENTIN [Suspect]
     Active Substance: GABAPENTIN
     Dosage: 800 MILLIGRAM, TID (THREE TIMES A DAY)
     Route: 065
  3. GABAPENTIN [Suspect]
     Active Substance: GABAPENTIN
     Dosage: 800 MILLIGRAM, TID (THREE TIMES A DAY)
     Route: 065
  4. GABAPENTIN [Suspect]
     Active Substance: GABAPENTIN
     Dosage: 800 MILLIGRAM, TID (THREE TIMES A DAY)

REACTIONS (1)
  - Off label use [Unknown]
